FAERS Safety Report 7556742-2 (Version None)
Quarter: 2011Q2

REPORT INFORMATION
  Report Type: 
  Country: None (occurrence: None)
  Receive Date: 20110620
  Receipt Date: 20110608
  Transmission Date: 20111010
  Serious: Yes (Hospitalization)
  Sender: FDA-Public Use
  Company Number: JP-SANOFI-AVENTIS-2011SA036659

PATIENT
  Age: 68 Year
  Sex: Female

DRUGS (3)
  1. CYCLOPHOSPHAMIDE [Concomitant]
     Route: 065
  2. DOCETAXEL [Suspect]
     Route: 065
  3. ADRIAMYCIN PFS [Concomitant]
     Route: 065

REACTIONS (5)
  - HAEMATOCHEZIA [None]
  - COLITIS ULCERATIVE [None]
  - ANAEMIA [None]
  - ABDOMINAL PAIN LOWER [None]
  - ULCER HAEMORRHAGE [None]
